FAERS Safety Report 6042316-1 (Version None)
Quarter: 2009Q1

REPORT INFORMATION
  Report Type: 
  Country: None (occurrence: None)
  Receive Date: 20090116
  Receipt Date: 20090107
  Transmission Date: 20090719
  Serious: Yes (Hospitalization)
  Sender: FDA-Public Use
  Company Number: CH-PFIZER INC-2009155648

PATIENT

DRUGS (6)
  1. ZYVOXID [Suspect]
     Indication: MENINGITIS
     Dosage: 600 MG, 2X/DAY
     Route: 042
     Dates: start: 20081122, end: 20081130
  2. TRITTICO [Interacting]
     Route: 048
     Dates: end: 20081130
  3. MERONEM [Concomitant]
     Dosage: UNK
     Route: 042
     Dates: start: 20081122
  4. STILNOX [Concomitant]
     Dosage: UNK
     Route: 048
  5. SERESTA [Concomitant]
     Dosage: UNK
  6. URBANYL [Concomitant]
     Dosage: UNK
     Route: 048

REACTIONS (3)
  - COMA [None]
  - HYPOTENSION [None]
  - SEROTONIN SYNDROME [None]
